FAERS Safety Report 23343297 (Version 2)
Quarter: 2024Q1

REPORT INFORMATION
  Report Type: Spontaneous
  Country: CN (occurrence: CN)
  Receive Date: 20231227
  Receipt Date: 20240103
  Transmission Date: 20240410
  Serious: Yes (Hospitalization, Other)
  Sender: FDA-Public Use
  Company Number: CN-MLMSERVICE-20231214-4730326-1

PATIENT
  Age: 70 Year
  Sex: Male

DRUGS (2)
  1. METHYLPREDNISOLONE SODIUM SUCCINATE [Suspect]
     Active Substance: METHYLPREDNISOLONE SODIUM SUCCINATE
     Dosage: 250 MG/D, HIGH DOSE
     Route: 042
  2. METHYLPREDNISOLONE SODIUM SUCCINATE [Suspect]
     Active Substance: METHYLPREDNISOLONE SODIUM SUCCINATE
     Dosage: 160 MG/D, HIGH DOSE
     Route: 042

REACTIONS (5)
  - Haematological infection [Recovering/Resolving]
  - Urinary tract infection [Recovering/Resolving]
  - Condition aggravated [Recovering/Resolving]
  - Hyperthermia [Recovered/Resolved]
  - Off label use [Unknown]
